FAERS Safety Report 20966337 (Version 2)
Quarter: 2022Q3

REPORT INFORMATION
  Report Type: Spontaneous
  Country: JP (occurrence: JP)
  Receive Date: 20220616
  Receipt Date: 20220716
  Transmission Date: 20221027
  Serious: Yes (Death, Hospitalization)
  Sender: FDA-Public Use
  Company Number: JP-CHUGAI-2022010662

PATIENT
  Age: 50 Year
  Sex: Female
  Weight: 58.4 kg

DRUGS (7)
  1. AVASTIN [Suspect]
     Active Substance: BEVACIZUMAB
     Indication: Fallopian tube cancer
     Route: 041
     Dates: start: 20200127, end: 20201210
  2. AVASTIN [Suspect]
     Active Substance: BEVACIZUMAB
     Route: 041
     Dates: start: 20210423, end: 20210811
  3. AVASTIN [Suspect]
     Active Substance: BEVACIZUMAB
     Route: 041
     Dates: start: 20210915, end: 20211013
  4. PACLITAXEL [Concomitant]
     Active Substance: PACLITAXEL
     Indication: Fallopian tube cancer
     Dosage: UNK
     Route: 041
     Dates: start: 20200127, end: 20201210
  5. GEMCITABINE [Concomitant]
     Active Substance: GEMCITABINE
     Indication: Fallopian tube cancer
     Dosage: UNK
     Route: 041
     Dates: start: 20210423, end: 20210811
  6. GEMCITABINE [Concomitant]
     Active Substance: GEMCITABINE
     Dosage: UNK
     Route: 041
     Dates: start: 20210915, end: 20211013
  7. CARBOPLATIN [Concomitant]
     Active Substance: CARBOPLATIN
     Indication: Fallopian tube cancer
     Dosage: UNK
     Route: 041
     Dates: start: 20210423, end: 20210811

REACTIONS (3)
  - Gastrointestinal perforation [Fatal]
  - Venous thrombosis limb [Recovering/Resolving]
  - Disease progression [Fatal]

NARRATIVE: CASE EVENT DATE: 20200319
